FAERS Safety Report 23869196 (Version 1)
Quarter: 2024Q2

REPORT INFORMATION
  Report Type: Spontaneous
  Country: US (occurrence: US)
  Receive Date: 20240517
  Receipt Date: 20240517
  Transmission Date: 20240715
  Serious: No
  Sender: FDA-Public Use
  Company Number: US-Stemline Therapeutics, Inc.-2024ST000705

PATIENT
  Age: 75 Year
  Sex: Female

DRUGS (1)
  1. ORSERDU [Suspect]
     Active Substance: ELACESTRANT
     Indication: Product used for unknown indication
     Dosage: 345 MG, ONCE A DAY
     Route: 048
     Dates: start: 20240101

REACTIONS (11)
  - Arterial disorder [Unknown]
  - Somnolence [Recovering/Resolving]
  - Hypoaesthesia [Recovering/Resolving]
  - Swelling [Recovering/Resolving]
  - Pain [Not Recovered/Not Resolved]
  - Adverse reaction [Not Recovered/Not Resolved]
  - Mobility decreased [Recovering/Resolving]
  - Bone pain [Not Recovered/Not Resolved]
  - Myalgia [Not Recovered/Not Resolved]
  - Constipation [Recovering/Resolving]
  - Insomnia [Not Recovered/Not Resolved]
